FAERS Safety Report 21264674 (Version 1)
Quarter: 2022Q3

REPORT INFORMATION
  Report Type: Spontaneous
  Country: US (occurrence: None)
  Receive Date: 20220826
  Receipt Date: 20220826
  Transmission Date: 20221027
  Serious: Yes (Hospitalization)
  Sender: FDA-Public Use
  Company Number: None

PATIENT
  Age: 68 Year
  Sex: Male

DRUGS (1)
  1. IBUPROFEN [Suspect]
     Active Substance: IBUPROFEN
     Indication: Pain
     Dates: start: 20220701, end: 20220815

REACTIONS (4)
  - Haemorrhage [None]
  - Acute kidney injury [None]
  - Melaena [None]
  - Haemoglobin decreased [None]

NARRATIVE: CASE EVENT DATE: 20220821
